FAERS Safety Report 5705289-4 (Version None)
Quarter: 2008Q2

REPORT INFORMATION
  Report Type: 
  Country: None (occurrence: None)
  Receive Date: 20080411
  Receipt Date: 20080404
  Transmission Date: 20081010
  Serious: Yes (Other)
  Sender: FDA-Public Use
  Company Number: 2008008451

PATIENT
  Age: 61 Year
  Sex: Female
  Weight: 104.3 kg

DRUGS (4)
  1. BENADRYL ALLERGY + SINUS HEADACHE W/PE (DIPHENHYDRAMINE, PHENYLEPHRINE [Suspect]
     Indication: URTICARIA
     Dosage: 1 CAPLET EVERY 4 HOURS (1 IN 4 HR), ORAL
     Route: 048
     Dates: start: 20080404, end: 20080404
  2. ATENOLOL [Concomitant]
  3. GLUCOPHAGE [Concomitant]
  4. HYDROCHLOROTHIAZIDE [Concomitant]

REACTIONS (4)
  - COLD SWEAT [None]
  - NO THERAPEUTIC RESPONSE [None]
  - PRURITUS [None]
  - URTICARIA [None]
